FAERS Safety Report 11357794 (Version 1)
Quarter: 2015Q3

REPORT INFORMATION
  Report Type: Spontaneous
  Country: US (occurrence: US)
  Receive Date: 20150803
  Receipt Date: 20150803
  Transmission Date: 20151125
  Serious: No
  Sender: FDA-Public Use
  Company Number: US-ELI_LILLY_AND_COMPANY-US201012004863

PATIENT
  Age: 43 Year
  Sex: Male

DRUGS (1)
  1. ZYPREXA [Suspect]
     Active Substance: OLANZAPINE
     Indication: BIPOLAR DISORDER
     Dosage: 10 MG, DAILY (1/D)
     Dates: end: 20101215

REACTIONS (5)
  - Insomnia [Unknown]
  - Oral disorder [Unknown]
  - Drug dose omission [Unknown]
  - Visual impairment [Unknown]
  - Muscle twitching [Unknown]

NARRATIVE: CASE EVENT DATE: 201012
